FAERS Safety Report 7817952-X (Version None)
Quarter: 2011Q4

REPORT INFORMATION
  Report Type: 
  Country: None (occurrence: None)
  Receive Date: 20111017
  Receipt Date: 20111007
  Transmission Date: 20120403
  Serious: Yes (Hospitalization)
  Sender: FDA-Public Use
  Company Number: GB-GLAXOSMITHKLINE-B0726054A

PATIENT
  Sex: Female

DRUGS (2)
  1. AVANDIA [Suspect]
     Indication: TYPE 2 DIABETES MELLITUS
     Route: 048
     Dates: start: 20020530
  2. METFORMIN HYDROCHLORIDE [Concomitant]
     Indication: TYPE 2 DIABETES MELLITUS
     Dosage: 850MG TWICE PER DAY

REACTIONS (7)
  - DISABILITY [None]
  - CARDIAC ASSISTANCE DEVICE USER [None]
  - ANGINA PECTORIS [None]
  - CORONARY ARTERY DISEASE [None]
  - ATRIOVENTRICULAR BLOCK COMPLETE [None]
  - EMOTIONAL DISTRESS [None]
  - LEFT VENTRICULAR HYPERTROPHY [None]
